FAERS Safety Report 24012332 (Version 1)
Quarter: 2024Q2

REPORT INFORMATION
  Report Type: Spontaneous
  Country: CN (occurrence: CN)
  Receive Date: 20240625
  Receipt Date: 20240625
  Transmission Date: 20240715
  Serious: Yes (Other)
  Sender: FDA-Public Use
  Company Number: CN-PFIZER INC-PV202400082261

PATIENT
  Age: 44 Year
  Sex: Female
  Weight: 48.6 kg

DRUGS (3)
  1. EPIRUBICIN [Suspect]
     Active Substance: EPIRUBICIN
     Indication: Invasive breast carcinoma
     Dosage: 140 MG, 1X/DAY
     Route: 041
     Dates: start: 20240607, end: 20240607
  2. CYCLOPHOSPHAMIDE [Suspect]
     Active Substance: CYCLOPHOSPHAMIDE
     Indication: Invasive breast carcinoma
     Dosage: 870 MG, 1X/DAY
     Route: 041
     Dates: start: 20240607, end: 20240607
  3. SODIUM CHLORIDE [Concomitant]
     Active Substance: SODIUM CHLORIDE
     Indication: Invasive breast carcinoma
     Dosage: 100 ML, 1X/DAY
     Route: 041
     Dates: start: 20240607, end: 20240607

REACTIONS (3)
  - Hypocalcaemia [Unknown]
  - White blood cell count decreased [Recovered/Resolved]
  - Neutrophil count decreased [Recovered/Resolved]

NARRATIVE: CASE EVENT DATE: 20240609
